FAERS Safety Report 15975060 (Version 1)
Quarter: 2019Q1

REPORT INFORMATION
  Report Type: Spontaneous
  Country: US (occurrence: US)
  Receive Date: 20190218
  Receipt Date: 20190218
  Transmission Date: 20190418
  Serious: No
  Sender: FDA-Public Use
  Company Number: US-PFIZER INC-2019062104

PATIENT
  Age: 45 Year
  Sex: Female
  Weight: 111.13 kg

DRUGS (3)
  1. LYRICA [Suspect]
     Active Substance: PREGABALIN
     Indication: NERVE INJURY
  2. LYRICA [Suspect]
     Active Substance: PREGABALIN
     Indication: FIBROMYALGIA
     Dosage: 300 MG, TWICE DAILY
     Route: 048
     Dates: start: 2013, end: 2019
  3. LYRICA [Suspect]
     Active Substance: PREGABALIN
     Indication: BACK INJURY

REACTIONS (1)
  - Arthritis [Unknown]
